FAERS Safety Report 13191873 (Version 2)
Quarter: 2017Q4

REPORT INFORMATION
  Report Type: Spontaneous
  Country: NO (occurrence: NO)
  Receive Date: 20170207
  Receipt Date: 20171213
  Transmission Date: 20180320
  Serious: Yes (Other)
  Sender: FDA-Public Use
  Company Number: NO-ROCHE-1888088

PATIENT
  Age: 40 Year
  Sex: Female

DRUGS (1)
  1. RIVOTRIL [Suspect]
     Active Substance: CLONAZEPAM
     Indication: EPILEPSY
     Route: 048
     Dates: start: 2001, end: 2016

REACTIONS (15)
  - Hyposmia [Recovered/Resolved]
  - Memory impairment [Recovering/Resolving]
  - Depression [Unknown]
  - Overdose [Unknown]
  - Dependence [Unknown]
  - Asthenia [Recovering/Resolving]
  - Hypoacusis [Recovered/Resolved]
  - Drug dependence [Recovered/Resolved]
  - Somnolence [Recovered/Resolved]
  - Off label use [Unknown]
  - Hypogeusia [Recovered/Resolved]
  - Crying [Unknown]
  - Abnormal behaviour [Unknown]
  - Affect lability [Recovering/Resolving]
  - Feeling abnormal [Unknown]
